FAERS Safety Report 6182441-8 (Version None)
Quarter: 2009Q2

REPORT INFORMATION
  Report Type: 
  Country: None (occurrence: None)
  Receive Date: 20090507
  Receipt Date: 20090504
  Transmission Date: 20091009
  Serious: Yes (Death, Other)
  Sender: FDA-Public Use
  Company Number: DE-BAYER-200915129GPV

PATIENT
  Age: 65 Year
  Sex: Male
  Weight: 63 kg

DRUGS (3)
  1. MABCAMPATH [Suspect]
     Indication: T-CELL PROLYMPHOCYTIC LEUKAEMIA
     Route: 042
     Dates: start: 20090112, end: 20090225
  2. TAVOR [Concomitant]
     Indication: RESTLESSNESS
     Route: 042
  3. TORSEMIDE [Concomitant]
     Indication: OEDEMA
     Route: 048

REACTIONS (8)
  - ABDOMINAL DISTENSION [None]
  - ASCITES [None]
  - DEATH [None]
  - GENERAL PHYSICAL HEALTH DETERIORATION [None]
  - HAEMOTHORAX [None]
  - OEDEMA [None]
  - PLEURAL EFFUSION [None]
  - SKIN REACTION [None]
